FAERS Safety Report 16190859 (Version 1)
Quarter: 2019Q2

REPORT INFORMATION
  Report Type: Other
  Country: GB (occurrence: GB)
  Receive Date: 20190412
  Receipt Date: 20190412
  Transmission Date: 20190711
  Serious: Yes (Other)
  Sender: FDA-Public Use
  Company Number: GB-APOTEX-2019AP011384

PATIENT
  Age: 78 Year
  Sex: Female
  Weight: 75 kg

DRUGS (4)
  1. ALENDRONIC ACID TABLETS [Suspect]
     Active Substance: ALENDRONIC ACID
     Indication: PRODUCT USED FOR UNKNOWN INDICATION
     Dosage: 70 MG, Q.WK. (CUMULATIVE DOSE TO FIRST REACTION: 760 MG)
     Route: 048
     Dates: start: 20180725
  2. AMITRIPTYLINE HYDROCHLORIDE. [Concomitant]
     Active Substance: AMITRIPTYLINE HYDROCHLORIDE
     Indication: PRODUCT USED FOR UNKNOWN INDICATION
     Dosage: UNK, Q.H.S. (1-2 EACH NIGHT)
     Route: 065
     Dates: start: 20180718, end: 20180805
  3. COCODAMOL [Concomitant]
     Active Substance: ACETAMINOPHEN\CODEINE PHOSPHATE
     Indication: PRODUCT USED FOR UNKNOWN INDICATION
     Dosage: UNK (TAKE 1 OR 2 4 TIMES/DAY)
     Route: 065
     Dates: start: 20180710, end: 20180717
  4. CANDESARTAN. [Concomitant]
     Active Substance: CANDESARTAN
     Indication: PRODUCT USED FOR UNKNOWN INDICATION
     Dosage: 1 DF, QD (CUMULATIVE DOSE TO FIRST REACTION: 441 DF)
     Route: 065
     Dates: start: 20170725

REACTIONS (1)
  - Fractured sacrum [Recovering/Resolving]

NARRATIVE: CASE EVENT DATE: 20181009
